FAERS Safety Report 23149496 (Version 1)
Quarter: 2023Q4

REPORT INFORMATION
  Report Type: Spontaneous
  Country: CN (occurrence: CN)
  Receive Date: 20231106
  Receipt Date: 20231106
  Transmission Date: 20240110
  Serious: Yes (Hospitalization)
  Sender: FDA-Public Use
  Company Number: CN-Merck Healthcare KGaA-2023484513

PATIENT
  Age: 63 Year
  Sex: Male
  Weight: 62 kg

DRUGS (8)
  1. ERBITUX [Suspect]
     Active Substance: CETUXIMAB
     Indication: Colorectal cancer metastatic
     Dosage: 800 MG, UNKNOWN
     Route: 041
     Dates: start: 20230831
  2. ERBITUX [Suspect]
     Active Substance: CETUXIMAB
     Dosage: 800 MG, UNKNOWN
     Route: 041
     Dates: start: 20230917
  3. LEUCOVORIN CALCIUM [Suspect]
     Active Substance: LEUCOVORIN CALCIUM
     Indication: Colorectal cancer metastatic
     Dosage: 600 MG, DAILY
     Route: 041
     Dates: start: 20230831
  4. LEUCOVORIN CALCIUM [Suspect]
     Active Substance: LEUCOVORIN CALCIUM
     Dosage: 600 MG, DAILY
     Route: 041
     Dates: start: 20230917
  5. FLUOROURACIL [Suspect]
     Active Substance: FLUOROURACIL
     Indication: Colorectal cancer metastatic
     Dosage: 0.6 MG, DAILY
     Route: 041
     Dates: start: 20230831
  6. FLUOROURACIL [Suspect]
     Active Substance: FLUOROURACIL
     Dosage: 0.6 MG, DAILY
     Route: 041
     Dates: start: 20230917
  7. IRINOTECAN HYDROCHLORIDE [Suspect]
     Active Substance: IRINOTECAN HYDROCHLORIDE
     Indication: Neoplasm malignant
     Dosage: 280 MG, DAILY
     Route: 041
     Dates: start: 20230831
  8. IRINOTECAN HYDROCHLORIDE [Suspect]
     Active Substance: IRINOTECAN HYDROCHLORIDE
     Dosage: 280 MG, DAILY
     Route: 041
     Dates: start: 20230917

REACTIONS (1)
  - Myelosuppression [Recovering/Resolving]

NARRATIVE: CASE EVENT DATE: 20230917
